FAERS Safety Report 4795199-1 (Version None)
Quarter: 2005Q4

REPORT INFORMATION
  Report Type: 
  Country: None (occurrence: None)
  Receive Date: 20051006
  Receipt Date: 20050926
  Transmission Date: 20060501
  Serious: Yes (Life-Threatening)
  Sender: FDA-Public Use
  Company Number: 2005EU001900

PATIENT
  Age: 58 Year
  Sex: Male

DRUGS (7)
  1. FK506 (TACROLIMUS) CAPSULE [Suspect]
     Indication: LIVER TRANSPLANT
     Dosage: 3.00 MG, BID, ORAL
     Route: 048
     Dates: start: 20050626
  2. MYCOPHENOLATE MOFETIL (MYCOPHENOLATE MOFETIL) [Suspect]
     Indication: LIVER TRANSPLANT
     Dosage: 1000.00 MG, BID, IV NOS
     Route: 042
     Dates: start: 20050626
  3. METHYLPREDNISOLONE [Suspect]
     Indication: LIVER TRANSPLANT
     Dosage: 500.00 MG, UID/QD
     Dates: start: 20050626, end: 20050712
  4. PREDNISONE [Suspect]
     Indication: LIVER TRANSPLANT
     Dosage: 20.00 MG, UID/QD,
     Dates: start: 20050626
  5. ANTITHROMBIN III (ANTITHROMBIN III) [Concomitant]
  6. TRIMETHOPRIM [Concomitant]
  7. CALCIUM (CALCIUM) [Concomitant]

REACTIONS (1)
  - REPERFUSION INJURY [None]
